FAERS Safety Report 8134259-4 (Version None)
Quarter: 2012Q1

REPORT INFORMATION
  Report Type: 
  Country: None (occurrence: None)
  Receive Date: 20120209
  Receipt Date: 20120206
  Transmission Date: 20120608
  Serious: Yes (Other)
  Sender: FDA-Public Use
  Company Number: 2012MA001630

PATIENT
  Age: 2 Year
  Sex: Female

DRUGS (1)
  1. IBUPROFEN [Suspect]
     Dosage: 60 ML;1X;PO
     Route: 048
     Dates: start: 20120206, end: 20120206

REACTIONS (2)
  - PRODUCT CONTAINER SEAL ISSUE [None]
  - ACCIDENTAL DRUG INTAKE BY CHILD [None]
